FAERS Safety Report 16198836 (Version 2)
Quarter: 2019Q2

REPORT INFORMATION
  Report Type: Spontaneous
  Country: DE (occurrence: DE)
  Receive Date: 20190415
  Receipt Date: 20190504
  Transmission Date: 20190711
  Serious: Yes (Hospitalization, Other)
  Sender: FDA-Public Use
  Company Number: DE-TEVA-2019-DE-1039343

PATIENT
  Age: 46 Year
  Sex: Female

DRUGS (3)
  1. OBINUTUZUMAB. [Suspect]
     Active Substance: OBINUTUZUMAB
     Dosage: 1000 MG, UNKNOWN FREQ. (MAINTENANCE TREATMENT) 8 WEEK
     Route: 042
     Dates: start: 20180219, end: 20190109
  2. OBINUTUZUMAB. [Suspect]
     Active Substance: OBINUTUZUMAB
     Indication: NON-HODGKIN^S LYMPHOMA
     Dosage: UNK UNK, UNKNOWN FREQ.(1ST LINE THERAPY)
     Route: 042
  3. BENDAMUSTINE HYDROCHLORIDE. [Suspect]
     Active Substance: BENDAMUSTINE HYDROCHLORIDE
     Indication: NON-HODGKIN^S LYMPHOMA
     Dosage: UNK UNK, CYCLIC (TOGETHER WITH GAZYVARO)
     Route: 042

REACTIONS (9)
  - C-reactive protein increased [Not Recovered/Not Resolved]
  - Pyrexia [Not Recovered/Not Resolved]
  - Fatigue [Not Recovered/Not Resolved]
  - Meningitis enteroviral [Not Recovered/Not Resolved]
  - Blood lactate dehydrogenase increased [Not Recovered/Not Resolved]
  - Aspartate aminotransferase increased [Not Recovered/Not Resolved]
  - Sudden hearing loss [Unknown]
  - Alanine aminotransferase increased [Not Recovered/Not Resolved]
  - Colitis ulcerative [Unknown]

NARRATIVE: CASE EVENT DATE: 201901
